FAERS Safety Report 6731204-0 (Version None)
Quarter: 2010Q2

REPORT INFORMATION
  Report Type: 
  Country: None (occurrence: None)
  Receive Date: 20100518
  Receipt Date: 20100505
  Transmission Date: 20101027
  Serious: Yes (Hospitalization, Other)
  Sender: FDA-Public Use
  Company Number: US-ELI_LILLY_AND_COMPANY-US201005001944

PATIENT
  Sex: Female

DRUGS (5)
  1. FORTEO [Suspect]
     Indication: OSTEOPOROSIS
     Dosage: 20 UG, DAILY (1/D)
     Dates: start: 20091120
  2. ASPIRIN [Concomitant]
  3. PLAVIX [Concomitant]
  4. LOPRESSOR [Concomitant]
  5. ZOCOR [Concomitant]

REACTIONS (3)
  - CORONARY ARTERY OCCLUSION [None]
  - INVESTIGATION [None]
  - MYOCARDIAL INFARCTION [None]
